FAERS Safety Report 18503843 (Version 8)
Quarter: 2021Q3

REPORT INFORMATION
  Report Type: Report from Study
  Country: CO (occurrence: CO)
  Receive Date: 20201113
  Receipt Date: 20210907
  Transmission Date: 20211014
  Serious: Yes (Hospitalization, Other)
  Sender: FDA-Public Use
  Company Number: CO-TAKEDA-CO202019701

PATIENT
  Age: 14 Year
  Sex: Male
  Weight: 39 kg

DRUGS (5)
  1. IDURSULFASE [Suspect]
     Active Substance: IDURSULFASE
     Indication: MUCOPOLYSACCHARIDOSIS II
     Dosage: 0.5 MILLIGRAM/KILOGRAM, 1/WEEK
     Route: 042
     Dates: start: 20120401
  2. IDURSULFASE [Suspect]
     Active Substance: IDURSULFASE
     Dosage: 0.5 MILLIGRAM/KILOGRAM, 1/WEEK
     Route: 042
     Dates: start: 20200401
  3. IDURSULFASE [Suspect]
     Active Substance: IDURSULFASE
     Dosage: 19 MILLIGRAM, 1/WEEK
     Route: 042
     Dates: start: 20120401
  4. QUETIAPINE. [Concomitant]
     Active Substance: QUETIAPINE
     Dosage: 200 MILLIGRAM, Q12H
     Route: 065
  5. IDURSULFASE [Suspect]
     Active Substance: IDURSULFASE
     Dosage: 19 MILLIGRAM
     Route: 042

REACTIONS (20)
  - Walking disability [Recovered/Resolved]
  - Depressed mood [Not Recovered/Not Resolved]
  - Inappropriate schedule of product administration [Unknown]
  - Discomfort [Not Recovered/Not Resolved]
  - Pyrexia [Recovered/Resolved]
  - Catheter site infection [Unknown]
  - Skin discolouration [Recovered/Resolved]
  - Cough [Not Recovered/Not Resolved]
  - Infusion related reaction [Unknown]
  - Device leakage [Unknown]
  - Malaise [Not Recovered/Not Resolved]
  - Therapeutic procedure [Unknown]
  - Wrong technique in product usage process [Unknown]
  - Abdominal distension [Recovering/Resolving]
  - Body temperature increased [Not Recovered/Not Resolved]
  - Seizure [Recovered/Resolved]
  - Product prescribing error [Unknown]
  - Syncope [Recovered/Resolved]
  - Weight decreased [Unknown]
  - Incorrect dose administered [Unknown]

NARRATIVE: CASE EVENT DATE: 20200604
